FAERS Safety Report 11248637 (Version 1)
Quarter: 2015Q3

REPORT INFORMATION
  Report Type: Spontaneous
  Country: US (occurrence: US)
  Receive Date: 20150708
  Receipt Date: 20150708
  Transmission Date: 20151125
  Serious: Yes (Hospitalization)
  Sender: FDA-Public Use
  Company Number: US-ELI_LILLY_AND_COMPANY-US201001001679

PATIENT
  Age: 63 Year
  Sex: Female
  Weight: 64.81 kg

DRUGS (9)
  1. COLACE [Concomitant]
     Active Substance: DOCUSATE SODIUM
     Dates: start: 20071207
  2. PREDNISONE. [Concomitant]
     Active Substance: PREDNISONE
     Dosage: 5 MG, 2/D
     Dates: end: 200909
  3. PROZAC [Suspect]
     Active Substance: FLUOXETINE HYDROCHLORIDE
     Indication: DEPRESSION
     Dosage: UNK, UNKNOWN
     Route: 048
     Dates: start: 200906, end: 20090721
  4. CARVEDILOL. [Concomitant]
     Active Substance: CARVEDILOL
     Dates: start: 20060612
  5. PREDNISONE. [Concomitant]
     Active Substance: PREDNISONE
     Dosage: 5 MG, DAILY (1/D)
     Route: 048
     Dates: start: 20090722
  6. ZANTAC [Concomitant]
     Active Substance: RANITIDINE HYDROCHLORIDE
     Dosage: UNK, UNKNOWN
     Route: 065
     Dates: start: 20071207
  7. LISINOPRIL. [Concomitant]
     Active Substance: LISINOPRIL
     Dates: start: 20051201
  8. PRAVACHOL [Concomitant]
     Active Substance: PRAVASTATIN SODIUM
     Dates: start: 20051201
  9. MYCOPHENOLATE MOFETIL. [Concomitant]
     Active Substance: MYCOPHENOLATE MOFETIL

REACTIONS (1)
  - Hyponatraemia [Recovered/Resolved]

NARRATIVE: CASE EVENT DATE: 20090721
